FAERS Safety Report 6051142-9 (Version None)
Quarter: 2009Q1

REPORT INFORMATION
  Report Type: 
  Country: None (occurrence: None)
  Receive Date: 20090121
  Receipt Date: 20090105
  Transmission Date: 20090719
  Serious: Yes (Other)
  Sender: FDA-Public Use
  Company Number: 2009S1000221

PATIENT
  Age: 61 Year
  Sex: Female

DRUGS (6)
  1. MIRTAZAPINE (MIRTAZAPINE) (15 MG) [Suspect]
     Indication: PSYCHOTIC DISORDER
     Dosage: 15 MG; ORAL
     Route: 048
     Dates: start: 20081212, end: 20081216
  2. OLANZAPINE [Suspect]
     Indication: DEPRESSION
     Dosage: 5 MG; ORAL
     Route: 048
     Dates: start: 20081212, end: 20081215
  3. LEVETIRACETAM [Concomitant]
  4. LEVOTHYROXINE SODIUM [Concomitant]
  5. PHENYTOIN [Concomitant]
  6. THIAMINE HCL [Concomitant]

REACTIONS (5)
  - BLOOD COUNT ABNORMAL [None]
  - LYMPHOCYTE COUNT DECREASED [None]
  - NEUTROPHIL COUNT DECREASED [None]
  - PLATELET COUNT DECREASED [None]
  - WHITE BLOOD CELL COUNT DECREASED [None]
